FAERS Safety Report 21973533 (Version 2)
Quarter: 2023Q1

REPORT INFORMATION
  Report Type: Report from Study
  Country: US (occurrence: US)
  Receive Date: 20230209
  Receipt Date: 20230307
  Transmission Date: 20230418
  Serious: Yes (Other)
  Sender: FDA-Public Use
  Company Number: US-ALNYLAM PHARMACEUTICALS, INC.-ALN-2023-000564

PATIENT

DRUGS (2)
  1. OXLUMO [Suspect]
     Active Substance: LUMASIRAN
     Indication: Primary hyperoxaluria
     Dosage: 300 MILLIGRAM, MONTHLY
     Route: 058
     Dates: start: 20221031
  2. OXLUMO [Suspect]
     Active Substance: LUMASIRAN
     Dosage: UNK
     Route: 065
     Dates: start: 20230105

REACTIONS (2)
  - End stage renal disease [Unknown]
  - Renal stone removal [Unknown]

NARRATIVE: CASE EVENT DATE: 20230222
